FAERS Safety Report 8588871-9 (Version None)
Quarter: 2012Q3

REPORT INFORMATION
  Report Type: 
  Country: None (occurrence: None)
  Receive Date: 20120803
  Receipt Date: 20120803
  Transmission Date: 20120928
  Serious: Yes (Life-Threatening, Hospitalization)
  Sender: FDA-Public Use
  Company Number: None

PATIENT
  Age: 29 Year
  Sex: Female
  Weight: 90 kg

DRUGS (1)
  1. NUVARING [Suspect]
     Indication: CONTRACEPTION
     Dosage: MONTHS

REACTIONS (5)
  - COMA [None]
  - ANKLE FRACTURE [None]
  - RESPIRATORY FAILURE [None]
  - CARDIAC ARREST [None]
  - BRAIN INJURY [None]
